FAERS Safety Report 12634667 (Version 1)
Quarter: 2016Q3

REPORT INFORMATION
  Report Type: Spontaneous
  Country: US (occurrence: US)
  Receive Date: 20160808
  Receipt Date: 20160808
  Transmission Date: 20161109
  Serious: No
  Sender: FDA-Public Use
  Company Number: US-KVK-TECH, INC-1055936

PATIENT
  Sex: Female

DRUGS (1)
  1. PHENTERMINE HYDROCHLORIDE. [Suspect]
     Active Substance: PHENTERMINE HYDROCHLORIDE
     Indication: PRODUCT USED FOR UNKNOWN INDICATION

REACTIONS (3)
  - Somnolence [Recovered/Resolved]
  - Fatigue [Recovered/Resolved]
  - Depression [Recovered/Resolved]
